FAERS Safety Report 5684575-0 (Version None)
Quarter: 2008Q1

REPORT INFORMATION
  Report Type: 
  Country: None (occurrence: None)
  Receive Date: 20080328
  Receipt Date: 20070919
  Transmission Date: 20080703
  Serious: Yes (Hospitalization, Other)
  Sender: FDA-Public Use
  Company Number: US-BRISTOL-MYERS SQUIBB COMPANY-13704408

PATIENT
  Age: 77 Year
  Sex: Female
  Weight: 68 kg

DRUGS (7)
  1. ERBITUX [Suspect]
     Indication: NEOPLASM MALIGNANT
     Dosage: PT HAD ON WEEK 4 ON 13MAR2007
     Route: 042
     Dates: start: 20070220, end: 20070220
  2. BENADRYL [Concomitant]
     Route: 042
     Dates: start: 20070220, end: 20070220
  3. OMEPRAZOLE [Concomitant]
     Dates: start: 20070124
  4. NASONEX [Concomitant]
     Route: 045
     Dates: start: 20060101
  5. XANAX [Concomitant]
  6. GAS-X [Concomitant]
  7. RADIATION THERAPY [Concomitant]

REACTIONS (7)
  - DYSPNOEA [None]
  - NAUSEA [None]
  - PYREXIA [None]
  - SKIN DISORDER [None]
  - SKIN SWELLING [None]
  - THROAT TIGHTNESS [None]
  - VOMITING [None]
